FAERS Safety Report 25529020 (Version 3)
Quarter: 2025Q3

REPORT INFORMATION
  Report Type: Spontaneous
  Country: US (occurrence: US)
  Receive Date: 20250708
  Receipt Date: 20250828
  Transmission Date: 20251021
  Serious: No
  Sender: PFIZER
  Company Number: US-PFIZER INC-202500133187

PATIENT
  Age: 16 Year
  Sex: Male
  Weight: 68.027 kg

DRUGS (3)
  1. GENOTROPIN [Suspect]
     Active Substance: SOMATROPIN
     Indication: Small for dates baby
     Dosage: UNK UNK, DAILY
  2. ANASTROZOLE [Concomitant]
     Active Substance: ANASTROZOLE
     Indication: Small for dates baby
  3. XOLAIR [Concomitant]
     Active Substance: OMALIZUMAB
     Indication: Food allergy

REACTIONS (1)
  - Device material issue [Unknown]
